FAERS Safety Report 9980840 (Version 1)
Quarter: 2014Q1

REPORT INFORMATION
  Report Type: Spontaneous
  Country: US (occurrence: None)
  Receive Date: 20140306
  Receipt Date: 20140306
  Transmission Date: 20141002
  Serious: Yes (Death)
  Sender: FDA-Public Use
  Company Number: None

PATIENT
  Age: 81 Year
  Sex: Male
  Weight: 59 kg

DRUGS (8)
  1. XARELTO [Suspect]
     Indication: ATRIAL FIBRILLATION
     Dosage: 15 MG QD GASTRIC TUBE?PRIOR TO ADMISSION TILL CURRENT.
  2. ASPIRIN [Concomitant]
  3. DIGOXIN [Concomitant]
  4. METOPROLOL [Concomitant]
  5. FAMOTIDINE [Concomitant]
  6. LEVOTHYROXINE [Concomitant]
  7. EXCEDRIN ES [Concomitant]
  8. INFLUENZA VACCINE [Concomitant]

REACTIONS (6)
  - Mediastinal haematoma [None]
  - Cardiac tamponade [None]
  - Haemorrhage [None]
  - Blood pressure decreased [None]
  - Electrocardiogram change [None]
  - Aortic thrombosis [None]
